FAERS Safety Report 9393440 (Version 2)
Quarter: 2014Q4

REPORT INFORMATION
  Report Type: Report from Study
  Country: US (occurrence: US)
  Receive Date: 20130710
  Receipt Date: 20141020
  Transmission Date: 20150529
  Serious: Yes (Hospitalization)
  Sender: FDA-Public Use
  Company Number: US-US-EMD SERONO, INC.-7222453

PATIENT
  Age: 8 Year
  Sex: Male
  Weight: 28 kg

DRUGS (4)
  1. SAIZEN [Suspect]
     Active Substance: SOMATROPIN
     Indication: GROWTH HORMONE DEFICIENCY
     Route: 058
     Dates: start: 20120621
  2. SAIZEN [Suspect]
     Active Substance: SOMATROPIN
     Indication: BODY HEIGHT BELOW NORMAL
     Route: 058
     Dates: start: 20110429
  3. SAIZEN [Suspect]
     Active Substance: SOMATROPIN
     Indication: GROWTH RETARDATION
     Route: 058
  4. SAIZEN [Suspect]
     Active Substance: SOMATROPIN
     Route: 058

REACTIONS (4)
  - Lymphadenopathy [Recovered/Resolved]
  - Pain in extremity [Unknown]
  - Pneumonia [Unknown]
  - Lymph node pain [Unknown]

NARRATIVE: CASE EVENT DATE: 201204
